FAERS Safety Report 4562636-7 (Version None)
Quarter: 2005Q1

REPORT INFORMATION
  Report Type: 
  Country: None (occurrence: None)
  Receive Date: 20050127
  Receipt Date: 20050117
  Transmission Date: 20050727
  Serious: Yes (Life-Threatening)
  Sender: FDA-Public Use
  Company Number: ES-JNJFOC-20050104035

PATIENT
  Age: 21 Year
  Sex: Female

DRUGS (6)
  1. TOPAMAX [Suspect]
     Route: 049
     Dates: start: 20040501, end: 20041127
  2. SUAVURET [Suspect]
     Route: 049
  3. SUAVURET [Suspect]
     Indication: DRUG USE FOR UNKNOWN INDICATION
     Route: 049
  4. CIPRALEX [Concomitant]
     Route: 049
  5. IBUPROFEN [Concomitant]
     Route: 049
  6. GELOCATIL [Concomitant]
     Route: 049

REACTIONS (1)
  - PULMONARY THROMBOSIS [None]
